FAERS Safety Report 17152507 (Version 1)
Quarter: 2019Q4

REPORT INFORMATION
  Report Type: Spontaneous
  Country: US (occurrence: US)
  Receive Date: 20191213
  Receipt Date: 20191213
  Transmission Date: 20200122
  Serious: No
  Sender: FDA-Public Use
  Company Number: US-NOVOPROD-656039

PATIENT
  Sex: Male

DRUGS (1)
  1. LEVEMIR [Suspect]
     Active Substance: INSULIN DETEMIR
     Indication: PRODUCT USED FOR UNKNOWN INDICATION
     Dosage: UNK
     Route: 058
     Dates: start: 2011

REACTIONS (5)
  - Weight increased [Unknown]
  - Blood glucose increased [Unknown]
  - Tendonitis [Unknown]
  - Ill-defined disorder [Unknown]
  - Glycosylated haemoglobin increased [Unknown]
